FAERS Safety Report 6516604 (Version 4)
Quarter: 2012Q4

REPORT INFORMATION
  Report Type: 
  Country: US (occurrence: US)
  Receive Date: 20071228
  Receipt Date: 20121214
  Transmission Date: 20130627
  Serious: Yes (Hospitalization, Other)
  Sender: FDA-Public Use
  Company Number: US-PFIZER INC-2007106985

PATIENT
  Age: 41 Year
  Sex: Female
  Weight: 83.46 kg

DRUGS (10)
  1. SUTENT [Suspect]
     Indication: BLADDER TRANSITIONAL CELL CARCINOMA
     Dosage: 50 mg, 1x/day
     Route: 048
     Dates: start: 20071004, end: 20071101
  2. ACETAMINOPHEN-HYDROCODONE [Concomitant]
     Indication: PAIN
     Dosage: 500-5mg, q6prn as needed
     Route: 048
  3. BUPROPION SR [Concomitant]
     Dosage: 150 mg, 2x/day
     Route: 048
  4. FEXOFENADINE [Concomitant]
     Dosage: 180 mg, 1x/day
     Route: 048
  5. OMEPRAZOLE [Concomitant]
     Dosage: 20 mg, 2x/day
     Route: 048
  6. PHENAZOPYRIDINE [Concomitant]
     Dosage: 100 mg, q12
     Route: 048
  7. ATENOLOL [Concomitant]
     Dosage: 25 mg, 1x/day
     Route: 048
  8. FLUTICASONE [Concomitant]
     Dosage: 50 ug /Actuation qhs
  9. ALPRAZOLAM [Concomitant]
     Dosage: 0.5 mg, 1x/day
     Route: 048
  10. PAROXETINE [Concomitant]
     Dosage: 20 mg, 2x/day
     Route: 048

REACTIONS (3)
  - Small intestinal obstruction [Recovering/Resolving]
  - Intestinal perforation [Recovering/Resolving]
  - Ileus [Recovering/Resolving]
